FAERS Safety Report 7655914-6 (Version None)
Quarter: 2011Q3

REPORT INFORMATION
  Report Type: 
  Country: None (occurrence: None)
  Receive Date: 20110804
  Receipt Date: 20110804
  Transmission Date: 20111222
  Serious: Yes (Other)
  Sender: FDA-Public Use
  Company Number: None

PATIENT
  Age: 47 Year
  Sex: Female
  Weight: 99.79 kg

DRUGS (1)
  1. VENLAFAXINE HCL [Suspect]
     Indication: ANXIETY
     Dosage: 75MG
     Route: 048
     Dates: start: 20070901, end: 20110803

REACTIONS (5)
  - HEART RATE INCREASED [None]
  - TREMOR [None]
  - HEART RATE IRREGULAR [None]
  - NERVOUSNESS [None]
  - SLEEP DISORDER [None]
